FAERS Safety Report 9411176 (Version 1)
Quarter: 2013Q3

REPORT INFORMATION
  Report Type: Spontaneous
  Country: US (occurrence: US)
  Receive Date: 20130721
  Receipt Date: 20130721
  Transmission Date: 20140515
  Serious: No
  Sender: FDA-Public Use
  Company Number: US-B.I. PHARMACEUTICALS,INC./RIDGEFIELD-2013-BI-21152BP

PATIENT
  Age: 46 Year
  Sex: Female

DRUGS (1)
  1. SPIRIVA [Suspect]
     Dosage: FORMULATION: INHALER
     Route: 055
     Dates: start: 201102, end: 201202

REACTIONS (2)
  - Nausea [Recovered/Resolved]
  - Dry mouth [Recovered/Resolved]
